FAERS Safety Report 7628010-1 (Version None)
Quarter: 2011Q3

REPORT INFORMATION
  Report Type: 
  Country: None (occurrence: None)
  Receive Date: 20110722
  Receipt Date: 20100507
  Transmission Date: 20111222
  Serious: Yes (Other)
  Sender: FDA-Public Use
  Company Number: US-BIOGENIDEC-2007BI002649

PATIENT
  Age: 52 Year
  Sex: Male
  Weight: 115 kg

DRUGS (7)
  1. ACIPHEX [Concomitant]
  2. OMACOR [Concomitant]
  3. TYSABRI [Suspect]
     Route: 042
     Dates: start: 20060701, end: 20060901
  4. TYSABRI [Suspect]
     Route: 042
     Dates: start: 20061208, end: 20070202
  5. DITROPAN [Concomitant]
  6. TYSABRI [Suspect]
     Indication: MULTIPLE SCLEROSIS
     Route: 042
     Dates: start: 20050101, end: 20050201
  7. BACLOFEN [Concomitant]

REACTIONS (2)
  - HYPERTENSION [None]
  - ANAPHYLACTIC REACTION [None]
